FAERS Safety Report 5928284-9 (Version None)
Quarter: 2008Q4

REPORT INFORMATION
  Report Type: 
  Country: None (occurrence: None)
  Receive Date: 20081022
  Receipt Date: 20081022
  Transmission Date: 20090506
  Serious: Yes (Hospitalization, Other)
  Sender: FDA-Public Use
  Company Number: None

PATIENT
  Age: 57 Year
  Weight: 66.4 kg

DRUGS (12)
  1. SULFAMETHOXAZOLE AND TRIMETHOPRIM [Suspect]
     Indication: ANTIBIOTIC PROPHYLAXIS
     Dosage: 1 TABLET DAILY PO
     Route: 048
     Dates: start: 20071127, end: 20071228
  2. SULFAMETHOXAZOLE AND TRIMETHOPRIM [Suspect]
     Indication: LIVER TRANSPLANT
     Dosage: 1 TABLET DAILY PO
     Route: 048
     Dates: start: 20071127, end: 20071228
  3. TACROLIMUS [Concomitant]
  4. MYCOPHENOLATE MOEFETIL [Concomitant]
  5. CLOTRIMAZOLETROCHE [Concomitant]
  6. PREGABALIN [Concomitant]
  7. PREDNISONE TAB [Concomitant]
  8. OYSTERSHELL CALCIUM [Concomitant]
  9. MAGNESIUM OXIDE [Concomitant]
  10. ASPIRIN [Concomitant]
  11. MULTI-VITAMIN [Concomitant]
  12. LANSOPRAZOLE [Concomitant]

REACTIONS (6)
  - ANAEMIA [None]
  - DRUG HYPERSENSITIVITY [None]
  - EOSINOPHILIA [None]
  - HAEMOLYSIS [None]
  - HAPTOGLOBIN DECREASED [None]
  - PYREXIA [None]
